FAERS Safety Report 4493605-3 (Version None)
Quarter: 2004Q4

REPORT INFORMATION
  Report Type: 
  Country: None (occurrence: None)
  Receive Date: 20041103
  Receipt Date: 20041103
  Transmission Date: 20050328
  Serious: Yes (Death)
  Sender: FDA-Public Use
  Company Number: None

PATIENT
  Age: 61 Year
  Sex: Male
  Weight: 158.759 kg

DRUGS (1)
  1. BEXTRA [Suspect]
     Indication: ARTHRITIS
     Dosage: 2 PILLS DAY 1 AM. 1 PM
     Dates: start: 20040803, end: 20041010

REACTIONS (8)
  - CONFUSIONAL STATE [None]
  - DIZZINESS [None]
  - FLUID RETENTION [None]
  - MYOCARDIAL INFARCTION [None]
  - RASH ERYTHEMATOUS [None]
  - SOMNOLENCE [None]
  - STOMATITIS [None]
  - VISION BLURRED [None]
